FAERS Safety Report 8525648-4 (Version None)
Quarter: 2012Q3

REPORT INFORMATION
  Report Type: 
  Country: None (occurrence: None)
  Receive Date: 20120720
  Receipt Date: 20120716
  Transmission Date: 20120928
  Serious: No
  Sender: FDA-Public Use
  Company Number: US-009507513-1207USA005244

PATIENT

DRUGS (2)
  1. PROPECIA [Suspect]
     Dosage: UNK
     Route: 048
     Dates: start: 19980601, end: 20120626
  2. FLONASE [Concomitant]

REACTIONS (4)
  - LIBIDO DECREASED [None]
  - FEAR [None]
  - HAIR DISORDER [None]
  - MUSCULOSKELETAL STIFFNESS [None]
